FAERS Safety Report 5930029-3 (Version None)
Quarter: 2008Q4

REPORT INFORMATION
  Report Type: 
  Country: None (occurrence: None)
  Receive Date: 20081024
  Receipt Date: 20081013
  Transmission Date: 20090506
  Serious: Yes (Other)
  Sender: FDA-Public Use
  Company Number: US-PFIZER INC-2008086732

PATIENT
  Sex: Male

DRUGS (4)
  1. CHANTIX [Suspect]
     Indication: SMOKING CESSATION THERAPY
     Dates: start: 20080801
  2. SERTRALINE [Concomitant]
  3. TRAZODONE HCL [Concomitant]
  4. DRUG, UNSPECIFIED [Concomitant]

REACTIONS (1)
  - PARANOIA [None]
